FAERS Safety Report 8021520-7 (Version None)
Quarter: 2012Q1

REPORT INFORMATION
  Report Type: 
  Country: None (occurrence: None)
  Receive Date: 20120104
  Receipt Date: 20111227
  Transmission Date: 20120608
  Serious: Yes (Hospitalization)
  Sender: FDA-Public Use
  Company Number: US-BAYER-2011-080518

PATIENT
  Age: 48 Year
  Sex: Female
  Weight: 70.295 kg

DRUGS (2)
  1. NAPROXEN [Concomitant]
     Dosage: 500 MG, UNK
     Dates: start: 20090724
  2. YAZ [Suspect]
     Indication: CONTRACEPTION
     Dosage: UNK
     Dates: start: 20060101, end: 20090801

REACTIONS (6)
  - NON-CARDIAC CHEST PAIN [None]
  - DEEP VEIN THROMBOSIS [None]
  - PAIN [None]
  - PULMONARY EMBOLISM [None]
  - EMOTIONAL DISTRESS [None]
  - INJURY [None]
